FAERS Safety Report 7790729-X (Version None)
Quarter: 2011Q3

REPORT INFORMATION
  Report Type: 
  Country: None (occurrence: None)
  Receive Date: 20110930
  Receipt Date: 20090716
  Transmission Date: 20111222
  Serious: Yes (Death, Hospitalization)
  Sender: FDA-Public Use
  Company Number: PHHY2009TW60908

PATIENT
  Sex: Male

DRUGS (1)
  1. GLEEVEC [Suspect]
     Indication: GASTROINTESTINAL STROMAL TUMOUR
     Dosage: 400 MG, UNK
     Route: 048
     Dates: start: 20090312

REACTIONS (7)
  - OEDEMA PERIPHERAL [None]
  - ORBITAL OEDEMA [None]
  - FACE OEDEMA [None]
  - LOCALISED OEDEMA [None]
  - DEATH [None]
  - DECREASED APPETITE [None]
  - ABDOMINAL DISCOMFORT [None]
